FAERS Safety Report 17360714 (Version 3)
Quarter: 2020Q4

REPORT INFORMATION
  Report Type: Spontaneous
  Country: JP (occurrence: JP)
  Receive Date: 20200203
  Receipt Date: 20201015
  Transmission Date: 20210113
  Serious: Yes (Hospitalization)
  Sender: FDA-Public Use
  Company Number: JP-ELI_LILLY_AND_COMPANY-JP202001010739

PATIENT
  Age: 89 Year
  Sex: Female
  Weight: 55 kg

DRUGS (3)
  1. LOPERAMIDE HYDROCHLORIDE. [Concomitant]
     Active Substance: LOPERAMIDE HYDROCHLORIDE
     Indication: DIARRHOEA
     Dosage: 1 MG, PRN
     Route: 048
  2. BIO-THREE [Concomitant]
     Active Substance: HERBALS
     Dosage: UNK
     Route: 048
     Dates: start: 20190709, end: 20191205
  3. VERZENIO [Suspect]
     Active Substance: ABEMACICLIB
     Indication: BREAST CANCER
     Dosage: 150 MG, BID
     Route: 048
     Dates: start: 20190709, end: 20191205

REACTIONS (4)
  - Cough [Unknown]
  - Pyrexia [Unknown]
  - Lung disorder [Recovering/Resolving]
  - Imaging procedure abnormal [Unknown]

NARRATIVE: CASE EVENT DATE: 20191201
